FAERS Safety Report 8422719 (Version 3)
Quarter: 2013Q2

REPORT INFORMATION
  Report Type: Spontaneous
  Country: US (occurrence: None)
  Receive Date: 20120214
  Receipt Date: 20130423
  Transmission Date: 20140414
  Serious: Yes (Hospitalization)
  Sender: FDA-Public Use
  Company Number: 2012-0535

PATIENT
  Age: 74 Year
  Sex: Female
  Weight: 61 kg

DRUGS (5)
  1. SOMATULINE DEPOT [Suspect]
     Indication: ACROMEGALY
     Dosage: 90 MG (90 MG,1 IN 28 D)
     Route: 058
     Dates: start: 20111114
  2. TRIAMTERENE / HCTZ (DYAZIDE) [Concomitant]
  3. LOVASTATIN [Concomitant]
  4. CLONAZEPAM [Concomitant]
  5. TRAZODONE HYDROCHLORIDE [Concomitant]

REACTIONS (2)
  - BREAST CANCER FEMALE [None]
  - Hypertension [None]
